FAERS Safety Report 5161353-2 (Version None)
Quarter: 2006Q4

REPORT INFORMATION
  Report Type: 
  Country: None (occurrence: None)
  Receive Date: 20061121
  Receipt Date: 20061107
  Transmission Date: 20070319
  Serious: Yes (Life-Threatening, Hospitalization, Other)
  Sender: FDA-Public Use
  Company Number: DE-2006-019882

PATIENT
  Age: 45 Year
  Sex: Female
  Weight: 52 kg

DRUGS (13)
  1. BETASERON [Suspect]
     Indication: MULTIPLE SCLEROSIS
     Dosage: 250 UG, EVERY 2D, SUBCUTANEOUS
     Route: 058
     Dates: start: 19950101, end: 20010101
  2. BETASERON [Suspect]
     Indication: MULTIPLE SCLEROSIS
     Dosage: 250 UG, EVERY 2D, SUBCUTANEOUS
     Route: 058
     Dates: start: 20030101, end: 20060715
  3. DOXEPIN HCL [Concomitant]
  4. LORAZEPAM [Concomitant]
  5. MIRTAZAPINE [Concomitant]
  6. KREON [Concomitant]
  7. LORAZEPAM [Concomitant]
  8. SPIRONOLACTONE [Concomitant]
  9. PANTOPRAZOLE SODIUM [Concomitant]
  10. DIPYRONE TAB [Concomitant]
  11. DURAGESIC-100 [Concomitant]
  12. FRAGMIN P (HEPARIN-FRACTION, SODIUM SALT) [Concomitant]
  13. KALINOR-BRAUSETABLETTEN [Concomitant]

REACTIONS (12)
  - ADENOCARCINOMA PANCREAS [None]
  - BLOOD POTASSIUM DECREASED [None]
  - HAEMOGLOBIN DECREASED [None]
  - HEPATITIS [None]
  - HEPATOTOXICITY [None]
  - LIVER DISORDER [None]
  - METASTASES TO LIVER [None]
  - METASTASES TO LYMPH NODES [None]
  - OEDEMA [None]
  - PANCREATITIS ACUTE [None]
  - PANCREATITIS CHRONIC [None]
  - PSEUDOCYST [None]
